FAERS Safety Report 21056699 (Version 1)
Quarter: 2022Q3

REPORT INFORMATION
  Report Type: Report from Study
  Country: IT (occurrence: IT)
  Receive Date: 20220708
  Receipt Date: 20220708
  Transmission Date: 20221026
  Serious: Yes (Hospitalization)
  Sender: FDA-Public Use
  Company Number: None

PATIENT
  Age: 35 Year
  Sex: Female

DRUGS (6)
  1. QUETIAPINE FUMARATE [Suspect]
     Active Substance: QUETIAPINE FUMARATE
     Indication: Personality disorder
     Dates: start: 20220228, end: 20220228
  2. DIAZEPAM [Suspect]
     Active Substance: DIAZEPAM
     Indication: Affective disorder
     Dates: start: 20220228, end: 20220228
  3. MIRTAZAPINE [Suspect]
     Active Substance: MIRTAZAPINE
     Indication: Affective disorder
     Dates: start: 20220228, end: 20220228
  4. IBUPROFEN [Suspect]
     Active Substance: IBUPROFEN
     Indication: Product used for unknown indication
     Dates: start: 20220228, end: 20220228
  5. PROMAZINE HYDROCHLORIDE [Suspect]
     Active Substance: PROMAZINE HYDROCHLORIDE
     Indication: Affective disorder
     Dates: start: 20220228, end: 20220228
  6. VORTIOXETINE [Suspect]
     Active Substance: VORTIOXETINE
     Indication: Affective disorder
     Dosage: STRENGTH 10 MG
     Dates: start: 20220228, end: 20220228

REACTIONS (5)
  - Bradykinesia [Recovered/Resolved]
  - Bradyphrenia [Recovered/Resolved]
  - Sopor [Recovered/Resolved]
  - Intentional self-injury [Unknown]
  - Drug abuse [Unknown]

NARRATIVE: CASE EVENT DATE: 20220228
